FAERS Safety Report 24900542 (Version 2)
Quarter: 2025Q1

REPORT INFORMATION
  Report Type: Spontaneous
  Country: CO (occurrence: CO)
  Receive Date: 20250129
  Receipt Date: 20250206
  Transmission Date: 20250408
  Serious: Yes (Death, Hospitalization)
  Sender: SANDOZ
  Company Number: CO-002147023-NVSC2024CO248997

PATIENT
  Age: 76 Year
  Sex: Female
  Weight: 55 kg

DRUGS (1)
  1. EXELON [Suspect]
     Active Substance: RIVASTIGMINE TARTRATE
     Indication: Dementia Alzheimer^s type
     Dosage: 1 DOSAGE FORM (ONE PATCH), QD, EXTENDED RELEASE
     Route: 062
     Dates: start: 20240809, end: 20241206

REACTIONS (6)
  - Death [Fatal]
  - Depressed mood [Not Recovered/Not Resolved]
  - Escherichia urinary tract infection [Unknown]
  - Pyrexia [Recovered/Resolved]
  - Therapy interrupted [Not Recovered/Not Resolved]
  - Product prescribing issue [Not Recovered/Not Resolved]

NARRATIVE: CASE EVENT DATE: 20241207
